FAERS Safety Report 9921056 (Version 2)
Quarter: 2014Q2

REPORT INFORMATION
  Report Type: Report from Study
  Country: US (occurrence: US)
  Receive Date: 20140225
  Receipt Date: 20140507
  Transmission Date: 20141212
  Serious: Yes (Other)
  Sender: FDA-Public Use
  Company Number: US-BRISTOL-MYERS SQUIBB COMPANY-20244067

PATIENT
  Age: 46 Year
  Sex: Male
  Weight: 76.7 kg

DRUGS (3)
  1. IPILIMUMAB [Suspect]
     Indication: MALIGNANT MELANOMA
     Dosage: TOTAL DOSE-740 MG,LAST DOSE ON 27-JAN-2014
     Route: 042
     Dates: start: 20131216
  2. DIPHENHYDRAMINE [Concomitant]
  3. IBUPROFEN [Concomitant]

REACTIONS (1)
  - Lung infection [Recovering/Resolving]
